FAERS Safety Report 9476461 (Version 1)
Quarter: 2013Q3

REPORT INFORMATION
  Report Type: Report from Study
  Country: CA (occurrence: CA)
  Receive Date: 20130826
  Receipt Date: 20130826
  Transmission Date: 20140515
  Serious: Yes (Other)
  Sender: FDA-Public Use
  Company Number: CA-JNJFOC-20130812122

PATIENT
  Age: 50 Year
  Sex: Female
  Weight: 85 kg

DRUGS (6)
  1. REMICADE [Suspect]
     Indication: COLITIS ULCERATIVE
     Dosage: PATIENT HAD 43 INFUSIONS
     Route: 042
  2. DEXIRON [Concomitant]
     Route: 065
  3. RAMIPRIL [Concomitant]
     Route: 065
  4. CRESTOR [Concomitant]
     Route: 065
  5. CARBAMAZEPINE [Concomitant]
     Route: 065
  6. METFORMIN [Concomitant]
     Route: 065

REACTIONS (4)
  - Pneumonia [Not Recovered/Not Resolved]
  - Ear pain [Not Recovered/Not Resolved]
  - Erythema [Not Recovered/Not Resolved]
  - Ear swelling [Not Recovered/Not Resolved]
